FAERS Safety Report 24139465 (Version 1)
Quarter: 2024Q3

REPORT INFORMATION
  Report Type: Spontaneous
  Country: GH (occurrence: ZA)
  Receive Date: 20240726
  Receipt Date: 20240726
  Transmission Date: 20241017
  Serious: Yes (Death)
  Sender: ROCHE
  Company Number: GH-ROCHE-10000034545

PATIENT

DRUGS (2)
  1. TECENTRIQ [Suspect]
     Active Substance: ATEZOLIZUMAB
     Indication: Product used for unknown indication
     Dosage: ON 05/JUL/2024, THE PATIENT RECEIVED MOST RECENT DOSE.
     Route: 065
  2. AVASTIN [Suspect]
     Active Substance: BEVACIZUMAB
     Indication: Product used for unknown indication
     Dosage: ON 05/JUL/2024, THE PATIENT RECEIVED MOST RECENT DOSE.
     Route: 065

REACTIONS (1)
  - Death [Fatal]
